FAERS Safety Report 10258512 (Version 1)
Quarter: 2014Q2

REPORT INFORMATION
  Report Type: Spontaneous
  Country: VE (occurrence: VE)
  Receive Date: 20140625
  Receipt Date: 20140625
  Transmission Date: 20141212
  Serious: Yes (Other)
  Sender: FDA-Public Use
  Company Number: VE-PFIZER INC-2014172966

PATIENT
  Sex: 0

DRUGS (1)
  1. TYGACIL [Suspect]
     Indication: GALLBLADDER OPERATION

REACTIONS (1)
  - Leukocytosis [Unknown]
